FAERS Safety Report 9091198 (Version 1)
Quarter: 2013Q1

REPORT INFORMATION
  Report Type: Spontaneous
  Country: GB (occurrence: GB)
  Receive Date: 20130131
  Receipt Date: 20130131
  Transmission Date: 20140127
  Serious: Yes (Other)
  Sender: FDA-Public Use
  Company Number: GB-BAYER-2013-010762

PATIENT
  Age: 44 Year
  Sex: Female
  Weight: 95.4 kg

DRUGS (7)
  1. NIFEDIPINE [Suspect]
     Indication: PRE-ECLAMPSIA
     Dosage: 40 MG/24HR, UNK
  2. NIFEDIPINE [Suspect]
     Indication: PRE-ECLAMPSIA
     Dosage: 80 MG/24HR, UNK
  3. NIFEDIPINE [Suspect]
     Indication: PRE-ECLAMPSIA
     Dosage: 40 MG/24HR, UNK
  4. METHYLDOPA [Concomitant]
  5. ACETYLSALICYLIC ACID({=100 MG) [Suspect]
     Indication: THROMBOSIS PROPHYLAXIS
     Dosage: 75 MG/24HR, UNK
  6. LABETALOL [Concomitant]
     Indication: PRE-ECLAMPSIA
  7. HEPARIN [Concomitant]
     Indication: THROMBOSIS PROPHYLAXIS

REACTIONS (6)
  - Hypertension [Recovered/Resolved]
  - Drug ineffective [Recovered/Resolved]
  - Exposure during pregnancy [None]
  - Foetal growth restriction [None]
  - Abortion induced [None]
  - Off label use [None]
